FAERS Safety Report 14358524 (Version 1)
Quarter: 2018Q1

REPORT INFORMATION
  Report Type: Spontaneous
  Country: US (occurrence: US)
  Receive Date: 20180105
  Receipt Date: 20180105
  Transmission Date: 20180509
  Serious: No
  Sender: FDA-Public Use
  Company Number: US-SA-2017SA211986

PATIENT
  Sex: Male

DRUGS (2)
  1. DUPIXENT [Suspect]
     Active Substance: DUPILUMAB
     Route: 058
     Dates: start: 20170817
  2. DUPIXENT [Suspect]
     Active Substance: DUPILUMAB
     Route: 058
     Dates: start: 20171012

REACTIONS (7)
  - Skin discolouration [Unknown]
  - Pain in extremity [Unknown]
  - Drug dose omission [Unknown]
  - Scar [Unknown]
  - Psoriasis [Unknown]
  - Musculoskeletal pain [Unknown]
  - Tenderness [Unknown]

NARRATIVE: CASE EVENT DATE: 2017
